FAERS Safety Report 4595301-0 (Version None)
Quarter: 2005Q1

REPORT INFORMATION
  Report Type: 
  Country: None (occurrence: None)
  Receive Date: 20050223
  Receipt Date: 20050214
  Transmission Date: 20050727
  Serious: Yes (Disabling)
  Sender: FDA-Public Use
  Company Number: 2005030305

PATIENT
  Age: 73 Year
  Sex: Female

DRUGS (3)
  1. LIPITOR [Suspect]
     Indication: BLOOD CHOLESTEROL INCREASED
     Dosage: 10 MG (10 MG, 1 IN 1 D), ORAL
     Route: 048
     Dates: end: 20041227
  2. HYZAAR [Concomitant]
  3. ASPIRIN [Concomitant]

REACTIONS (4)
  - ABASIA [None]
  - HYPOKINESIA [None]
  - MOBILITY DECREASED [None]
  - MYALGIA [None]
